FAERS Safety Report 5654772-9 (Version None)
Quarter: 2008Q1

REPORT INFORMATION
  Report Type: 
  Country: None (occurrence: None)
  Receive Date: 20080307
  Receipt Date: 20071212
  Transmission Date: 20080703
  Serious: No
  Sender: FDA-Public Use
  Company Number: A0642436A

PATIENT
  Age: 55 Year
  Sex: Female

DRUGS (5)
  1. REQUIP [Suspect]
     Indication: RESTLESS LEGS SYNDROME
     Dosage: 1.5MG THREE TIMES PER DAY
     Route: 048
     Dates: start: 20070304
  2. LOTREL [Concomitant]
  3. LIPITOR [Concomitant]
  4. NEXIUM [Concomitant]
  5. ZOLOFT [Concomitant]

REACTIONS (3)
  - DRUG INEFFECTIVE [None]
  - PARAESTHESIA [None]
  - SOMNOLENCE [None]
